FAERS Safety Report 22314123 (Version 1)
Quarter: 2023Q2

REPORT INFORMATION
  Report Type: Spontaneous
  Country: CN (occurrence: CN)
  Receive Date: 20230512
  Receipt Date: 20230512
  Transmission Date: 20230722
  Serious: Yes (Hospitalization)
  Sender: FDA-Public Use
  Company Number: CN-PFIZER INC-PV202300083400

PATIENT
  Age: 20 Year
  Sex: Male
  Weight: 55 kg

DRUGS (4)
  1. LINEZOLID [Suspect]
     Active Substance: LINEZOLID
     Indication: Anti-infective therapy
     Dosage: 0.6 G, 2X/DAY
     Route: 048
     Dates: start: 20230420, end: 20230426
  2. ERTAPENEM [Suspect]
     Active Substance: ERTAPENEM
     Indication: Anti-infective therapy
     Dosage: 1 G, 1X/DAY
     Route: 041
     Dates: start: 20230420, end: 20230426
  3. PIPERACILLIN SODIUM\TAZOBACTAM SODIUM [Concomitant]
     Active Substance: PIPERACILLIN SODIUM\TAZOBACTAM SODIUM
     Indication: Anti-infective therapy
     Dosage: 4.5 G, 3X/DAY
     Route: 041
     Dates: start: 20230426, end: 20230429
  4. VANCOCIN [Concomitant]
     Active Substance: VANCOMYCIN HYDROCHLORIDE
     Indication: Anti-infective therapy
     Dosage: 1 G, 2X/DAY
     Route: 041
     Dates: start: 20230426, end: 20230429

REACTIONS (1)
  - Platelet count increased [Recovering/Resolving]

NARRATIVE: CASE EVENT DATE: 20230426
